FAERS Safety Report 20874910 (Version 2)
Quarter: 2022Q2

REPORT INFORMATION
  Report Type: Spontaneous
  Country: US (occurrence: US)
  Receive Date: 20220526
  Receipt Date: 20220611
  Transmission Date: 20220721
  Serious: Yes (Other)
  Sender: FDA-Public Use
  Company Number: US-TEVA-2022-US-2039470

PATIENT
  Age: 56 Year
  Sex: Male

DRUGS (3)
  1. LENALIDOMIDE [Suspect]
     Active Substance: LENALIDOMIDE
     Indication: Plasma cell myeloma
     Dosage: RVD FOR FOUR CYCLES AND RE-INDUCTION WITH RVD FOR SIX CYCLES
     Route: 065
  2. LENALIDOMIDE [Suspect]
     Active Substance: LENALIDOMIDE
     Indication: Plasma cell myeloma
     Dosage: MAINTENANCE LENALIDOMIDE; ON DAYS 1-21 OF A 28-DAY CYCLE
     Route: 065
  3. LENALIDOMIDE [Suspect]
     Active Substance: LENALIDOMIDE
     Indication: Plasma cell myeloma
     Route: 065

REACTIONS (3)
  - Epstein Barr virus positive mucocutaneous ulcer [Recovered/Resolved]
  - Hodgkin^s disease [Recovered/Resolved]
  - Epstein-Barr virus associated lymphoma [Recovered/Resolved]
